FAERS Safety Report 15423314 (Version 2)
Quarter: 2018Q4

REPORT INFORMATION
  Report Type: Spontaneous
  Country: NL (occurrence: NL)
  Receive Date: 20180925
  Receipt Date: 20181115
  Transmission Date: 20190204
  Serious: Yes (Hospitalization, Other)
  Sender: FDA-Public Use
  Company Number: NL-ASTRAZENECA-2018SF20822

PATIENT
  Age: 38 Year
  Sex: Female

DRUGS (2)
  1. ESCITALOPRAM [Concomitant]
     Active Substance: ESCITALOPRAM OXALATE
     Indication: DEPRESSION
     Dosage: 10 MG ONE TABLET ONCE DAILY IN THE MORNING
     Route: 065
  2. SEROQUEL [Suspect]
     Active Substance: QUETIAPINE FUMARATE
     Indication: SCHIZOPHRENIA
     Dosage: 200MG ONE TABLET ONCE DAILY IN THE EVENING
     Route: 048

REACTIONS (5)
  - Thrombocytopenic purpura [Unknown]
  - Abdominal pain [Unknown]
  - Hypertriglyceridaemia [Recovered/Resolved]
  - Pancreatitis [Unknown]
  - Haemodynamic instability [Unknown]
